FAERS Safety Report 4433074-2 (Version None)
Quarter: 2004Q3

REPORT INFORMATION
  Report Type: 
  Country: None (occurrence: None)
  Receive Date: 20040823
  Receipt Date: 20040816
  Transmission Date: 20050211
  Serious: Yes (Other)
  Sender: FDA-Public Use
  Company Number: 200416486BWH

PATIENT
  Age: 77 Year
  Sex: Male
  Weight: 72.5755 kg

DRUGS (16)
  1. LEVITRA [Suspect]
     Indication: ERECTILE DYSFUNCTION
     Dosage: SEE IMAGE
     Route: 048
     Dates: start: 20040201
  2. LEVITRA [Suspect]
     Indication: ERECTILE DYSFUNCTION
     Dosage: SEE IMAGE
     Route: 048
     Dates: start: 20040201
  3. LEVITRA [Suspect]
     Indication: ERECTILE DYSFUNCTION
     Dosage: SEE IMAGE
     Route: 048
     Dates: start: 20040310
  4. PULMICORT [Concomitant]
  5. FORADIL [Concomitant]
  6. PROVENTIL [Concomitant]
  7. VALTREX [Concomitant]
  8. PROSED [Concomitant]
  9. DETROL [Concomitant]
  10. TESTOSTERONE [Concomitant]
  11. MOBIC [Concomitant]
  12. RABEPRAZOLE SODIUM [Concomitant]
  13. SIMVASTATIN [Concomitant]
  14. ANTIHISTAMINE (NOS) [Concomitant]
  15. CIALIS ^GLAXOSMITHKLINE^ [Concomitant]
  16. ALLERGY SHOTS [Concomitant]

REACTIONS (11)
  - BLOOD PRESSURE SYSTOLIC INCREASED [None]
  - BRONCHITIS [None]
  - EAR INFECTION [None]
  - FEELING ABNORMAL [None]
  - HEADACHE [None]
  - HOUSE DUST ALLERGY [None]
  - HYPERSENSITIVITY [None]
  - MASTOIDITIS [None]
  - NASOPHARYNGITIS [None]
  - SINUSITIS [None]
  - TINNITUS [None]
